FAERS Safety Report 19846497 (Version 1)
Quarter: 2021Q3

REPORT INFORMATION
  Report Type: Spontaneous
  Country: IR (occurrence: IR)
  Receive Date: 20210917
  Receipt Date: 20210917
  Transmission Date: 20211014
  Serious: Yes (Hospitalization, Other)
  Sender: FDA-Public Use
  Company Number: IR-PHARMATHEN-GPV2021PHT052815

PATIENT
  Age: 49 Year
  Sex: Female

DRUGS (4)
  1. DIMETHYL FUMARATE [Suspect]
     Active Substance: DIMETHYL FUMARATE
     Indication: MULTIPLE SCLEROSIS
     Dosage: 240 MG TWICE A DAY
  2. RITUXIMAB. [Concomitant]
     Active Substance: RITUXIMAB
     Dosage: (INTRAVENOUSLY 1 G)
  3. METHYLPREDNISOLONE. [Concomitant]
     Active Substance: METHYLPREDNISOLONE
     Dosage: 3 PULSES (TOTAL DOSE OF 3 G)
  4. CYCLOPHOSPHAMIDE. [Concomitant]
     Active Substance: CYCLOPHOSPHAMIDE
     Dosage: PULSE THERAPY (INTRAVENOUSLY 1G)

REACTIONS (8)
  - Monoparesis [Recovering/Resolving]
  - Condition aggravated [Unknown]
  - Paraesthesia [Recovering/Resolving]
  - Paraparesis [Recovering/Resolving]
  - Hyperreflexia [Recovering/Resolving]
  - Extensor plantar response [Unknown]
  - Neuromyelitis optica spectrum disorder [Unknown]
  - Myelitis transverse [Unknown]
